FAERS Safety Report 6958552-3 (Version None)
Quarter: 2010Q3

REPORT INFORMATION
  Report Type: 
  Country: None (occurrence: None)
  Receive Date: 20100831
  Receipt Date: 20100827
  Transmission Date: 20110219
  Serious: Yes (Hospitalization)
  Sender: FDA-Public Use
  Company Number: US-MERCK-1008USA02112

PATIENT
  Age: 74 Year
  Sex: Female

DRUGS (1)
  1. COZAAR [Suspect]
     Route: 048
     Dates: end: 20100701

REACTIONS (3)
  - HEADACHE [None]
  - HEART RATE INCREASED [None]
  - PAIN IN EXTREMITY [None]
